FAERS Safety Report 15207525 (Version 1)
Quarter: 2018Q3

REPORT INFORMATION
  Report Type: Spontaneous
  Country: US (occurrence: US)
  Receive Date: 20180727
  Receipt Date: 20180727
  Transmission Date: 20181010
  Serious: No
  Sender: FDA-Public Use
  Company Number: US-SA-2018SA203655

PATIENT
  Sex: Female

DRUGS (1)
  1. AUBAGIO [Suspect]
     Active Substance: TERIFLUNOMIDE
     Indication: MULTIPLE SCLEROSIS
     Dosage: 14 MG, QD
     Route: 048
     Dates: start: 20180621

REACTIONS (7)
  - Musculoskeletal pain [Unknown]
  - Visual impairment [Unknown]
  - Influenza [Unknown]
  - Electric shock [Unknown]
  - Chromaturia [Unknown]
  - Paraesthesia [Unknown]
  - Pain in extremity [Unknown]
